FAERS Safety Report 5992005-4 (Version None)
Quarter: 2008Q4

REPORT INFORMATION
  Report Type: 
  Country: None (occurrence: None)
  Receive Date: 20081202
  Receipt Date: 20080502
  Transmission Date: 20090506
  Serious: Yes (Other)
  Sender: FDA-Public Use
  Company Number: WAES 0805USA00462

PATIENT
  Age: 58 Year
  Sex: Female

DRUGS (2)
  1. FOSAMAX [Suspect]
     Indication: PROPHYLAXIS
     Dosage: 70 MG/WKY/PO
     Route: 048
     Dates: start: 20020115, end: 20050719
  2. PREMARIN [Concomitant]

REACTIONS (10)
  - ANXIETY [None]
  - DENTAL CARIES [None]
  - DEPRESSION [None]
  - EXOSTOSIS [None]
  - GINGIVAL BLEEDING [None]
  - MUSCLE TIGHTNESS [None]
  - ORAL INFECTION [None]
  - OSTEOMYELITIS [None]
  - OSTEONECROSIS [None]
  - STOMATITIS [None]
